FAERS Safety Report 8850494 (Version 1)
Quarter: 2012Q4

REPORT INFORMATION
  Report Type: Report from Study
  Country: BR (occurrence: BR)
  Receive Date: 20121019
  Receipt Date: 20121019
  Transmission Date: 20130627
  Serious: Yes (Other)
  Sender: FDA-Public Use
  Company Number: BR-ROCHE-1135128

PATIENT

DRUGS (1)
  1. GANCICLOVIR [Suspect]
     Indication: CYTOMEGALOVIRUS INFECTION
     Route: 065

REACTIONS (2)
  - Bone marrow failure [Unknown]
  - Anaemia [Unknown]
